FAERS Safety Report 5042551-5 (Version None)
Quarter: 2006Q3

REPORT INFORMATION
  Report Type: 
  Country: None (occurrence: None)
  Receive Date: 20060705
  Receipt Date: 20050314
  Transmission Date: 20061208
  Serious: Yes (Hospitalization, Disabling)
  Sender: FDA-Public Use
  Company Number: 2005GB00544

PATIENT
  Age: 30583 Day
  Sex: Female
  Weight: 87.5 kg

DRUGS (18)
  1. NOLVADEX [Suspect]
     Indication: BREAST CANCER
     Route: 048
     Dates: start: 19971112, end: 20021001
  2. CO-PROXAMOL [Concomitant]
     Indication: SKIN LESION
     Dates: start: 20011127
  3. FRUSEMIDE [Concomitant]
     Indication: HYPERTENSION
     Dates: start: 20020211
  4. CHLORPHENIRAMINE MALEATE [Concomitant]
     Indication: RASH PRURITIC
     Dates: start: 19990524
  5. AQUEOUS CREAM [Concomitant]
     Indication: RASH
     Dates: start: 19990524
  6. QUININE SULFATE [Concomitant]
     Indication: MUSCLE SPASMS
     Dates: start: 20010421
  7. ATENOLOL [Concomitant]
     Indication: HYPERTENSION
     Dates: start: 20010517
  8. PIRITON [Concomitant]
     Indication: RASH
     Dates: start: 19991115
  9. POTASSIUM PERMANGANATE [Concomitant]
     Indication: CELLULITIS
     Dates: start: 20020215
  10. PARAFIN [Concomitant]
     Indication: ECZEMA
     Dates: start: 20020215
  11. PARACETAMOL [Concomitant]
     Indication: SKIN LESION
     Dates: start: 20020211
  12. TRAMADOL HCL [Concomitant]
     Indication: CELLULITIS
     Dates: start: 20020312
  13. CEPHALEXIN [Concomitant]
     Indication: INFECTION
     Dates: start: 20011210
  14. GABAPENTIN [Concomitant]
     Indication: PAIN IN EXTREMITY
     Dates: start: 20020312
  15. BETNOVATE [Concomitant]
     Indication: STASIS DERMATITIS
     Dates: start: 20020322
  16. KALTOSTAT [Concomitant]
     Indication: SKIN MACERATION
     Dates: start: 20020322
  17. CLOTRIMAZOLE [Concomitant]
     Indication: FUNGAL RASH
     Dates: start: 20020404
  18. CALCICHEW D3 FORTE [Concomitant]
     Indication: OSTEOPOROSIS

REACTIONS (3)
  - BACK PAIN [None]
  - GROIN PAIN [None]
  - THORACIC VERTEBRAL FRACTURE [None]
